FAERS Safety Report 21566586 (Version 1)
Quarter: 2022Q4

REPORT INFORMATION
  Report Type: Spontaneous
  Country: US (occurrence: US)
  Receive Date: 20221108
  Receipt Date: 20221108
  Transmission Date: 20230113
  Serious: No
  Sender: FDA-Public Use
  Company Number: US-PFIZER INC-2020318704

PATIENT
  Age: 75 Year
  Sex: Male
  Weight: 86.18 kg

DRUGS (1)
  1. VYNDAMAX [Suspect]
     Active Substance: TAFAMIDIS
     Indication: Cardiac disorder
     Dosage: 61 MG, DAILY
     Dates: end: 202210

REACTIONS (2)
  - Memory impairment [Unknown]
  - Off label use [Unknown]
